APPROVED DRUG PRODUCT: METAPROTERENOL SULFATE
Active Ingredient: METAPROTERENOL SULFATE
Strength: 5%
Dosage Form/Route: SOLUTION;INHALATION
Application: A072190 | Product #001
Applicant: WOCKHARDT EU OPERATIONS (SWISS) AG
Approved: Jun 7, 1988 | RLD: No | RS: No | Type: DISCN